FAERS Safety Report 25050740 (Version 2)
Quarter: 2025Q1

REPORT INFORMATION
  Report Type: Spontaneous
  Country: IT (occurrence: IT)
  Receive Date: 20250307
  Receipt Date: 20250315
  Transmission Date: 20250408
  Serious: Yes (Hospitalization, Other)
  Sender: AUROBINDO
  Company Number: IT-ABBVIE-6137386

PATIENT
  Age: 63 Year
  Sex: Female

DRUGS (19)
  1. AZACITIDINE [Suspect]
     Active Substance: AZACITIDINE
     Indication: Acute myeloid leukaemia
     Route: 065
     Dates: start: 20240627, end: 20240630
  2. AZACITIDINE [Suspect]
     Active Substance: AZACITIDINE
     Route: 065
     Dates: start: 20240819, end: 20240823
  3. AZACITIDINE [Suspect]
     Active Substance: AZACITIDINE
     Route: 065
     Dates: start: 20240916, end: 20240920
  4. AZACITIDINE [Suspect]
     Active Substance: AZACITIDINE
     Route: 065
     Dates: start: 20241111, end: 20241115
  5. AZACITIDINE [Suspect]
     Active Substance: AZACITIDINE
     Route: 065
     Dates: start: 20241216, end: 20241220
  6. VENETOCLAX [Suspect]
     Active Substance: VENETOCLAX
     Indication: Acute myeloid leukaemia
     Route: 048
     Dates: start: 20240705, end: 20240714
  7. VENETOCLAX [Suspect]
     Active Substance: VENETOCLAX
     Route: 048
     Dates: start: 20240628, end: 20240628
  8. VENETOCLAX [Suspect]
     Active Substance: VENETOCLAX
     Route: 048
     Dates: start: 20240627, end: 20240627
  9. VENETOCLAX [Suspect]
     Active Substance: VENETOCLAX
     Route: 048
     Dates: start: 20241111, end: 20241124
  10. VENETOCLAX [Suspect]
     Active Substance: VENETOCLAX
     Route: 048
     Dates: start: 20241216, end: 20241224
  11. VENETOCLAX [Suspect]
     Active Substance: VENETOCLAX
     Route: 048
  12. VENETOCLAX [Suspect]
     Active Substance: VENETOCLAX
     Route: 048
  13. VENETOCLAX [Suspect]
     Active Substance: VENETOCLAX
     Route: 048
     Dates: start: 20240629, end: 20240701
  14. ACYCLOVIR [Concomitant]
     Active Substance: ACYCLOVIR
     Indication: Antiviral prophylaxis
     Route: 048
     Dates: start: 20240614
  15. ALLOPURINOL [Concomitant]
     Active Substance: ALLOPURINOL
     Indication: Prophylaxis
     Dosage: 300 MILLIGRAM, ONCE A DAY
     Route: 048
     Dates: start: 20240627
  16. ESCITALOPRAM [Concomitant]
     Active Substance: ESCITALOPRAM OXALATE
     Indication: Depression
     Dosage: 10 MILLIGRAM, ONCE A DAY
     Route: 048
     Dates: start: 2020
  17. PANTOPRAZOLE SODIUM [Concomitant]
     Active Substance: PANTOPRAZOLE SODIUM
     Indication: Gastritis
     Dosage: 40 MILLIGRAM, ONCE A DAY
     Route: 048
     Dates: start: 20240614
  18. POSACONAZOLE [Concomitant]
     Active Substance: POSACONAZOLE
     Indication: Antibiotic prophylaxis
     Dosage: 300 MILLIGRAM, ONCE A DAY
     Route: 048
     Dates: start: 20240615
  19. SITAGLIPTIN [Concomitant]
     Active Substance: SITAGLIPTIN
     Indication: Diabetes mellitus
     Dosage: 100 MILLIGRAM, ONCE A DAY
     Route: 048
     Dates: start: 202405

REACTIONS (4)
  - Febrile neutropenia [Recovered/Resolved]
  - Angina pectoris [Recovered/Resolved]
  - Asthenia [Recovered/Resolved]
  - Constipation [Recovered/Resolved]

NARRATIVE: CASE EVENT DATE: 20240720
